FAERS Safety Report 23425582 (Version 2)
Quarter: 2024Q1

REPORT INFORMATION
  Report Type: Spontaneous
  Country: JP (occurrence: JP)
  Receive Date: 20240122
  Receipt Date: 20240202
  Transmission Date: 20240409
  Serious: No
  Sender: FDA-Public Use
  Company Number: JP-JNJFOC-20240153400

PATIENT
  Age: 65 Year
  Sex: Female

DRUGS (1)
  1. UPTRAVI [Suspect]
     Active Substance: SELEXIPAG
     Indication: Pulmonary arterial hypertension
     Route: 048

REACTIONS (3)
  - Off label use [Unknown]
  - Blood pressure decreased [Recovered/Resolved]
  - Infection [Recovered/Resolved]
